FAERS Safety Report 4433260-1 (Version None)
Quarter: 2004Q3

REPORT INFORMATION
  Report Type: 
  Country: None (occurrence: None)
  Receive Date: 20040824
  Receipt Date: 20040813
  Transmission Date: 20050211
  Serious: Yes (Death)
  Sender: FDA-Public Use
  Company Number: A0393333A

PATIENT
  Age: 45 Year
  Sex: Male

DRUGS (1)
  1. WELLBUTRIN SR [Suspect]
     Indication: ILL-DEFINED DISORDER
     Dosage: SEE DOSAGE TEXT

REACTIONS (12)
  - BLOOD PH DECREASED [None]
  - BLOOD PRESSURE SYSTOLIC INCREASED [None]
  - CARDIO-RESPIRATORY ARREST [None]
  - COMA [None]
  - COMPLETED SUICIDE [None]
  - ELECTROLYTE IMBALANCE [None]
  - GRAND MAL CONVULSION [None]
  - HEART RATE INCREASED [None]
  - HEPATIC ENZYME INCREASED [None]
  - HYPERTHERMIA [None]
  - OVERDOSE [None]
  - RENAL FAILURE [None]
